FAERS Safety Report 8973882 (Version 11)
Quarter: 2015Q4

REPORT INFORMATION
  Report Type: Spontaneous
  Country: US (occurrence: US)
  Receive Date: 20121218
  Receipt Date: 20151008
  Transmission Date: 20160305
  Serious: Yes (Death, Hospitalization, Other)
  Sender: FDA-Public Use
  Company Number: US-GLAXOSMITHKLINE-A0993907A

PATIENT
  Age: 50 Year
  Sex: Female

DRUGS (8)
  1. FLOLAN [Suspect]
     Active Substance: EPOPROSTENOL SODIUM
     Dosage: 55.4 NG/KG/MIN CONTINUOUSLY
     Route: 042
  2. FLOLAN [Suspect]
     Active Substance: EPOPROSTENOL SODIUM
     Indication: COR PULMONALE CHRONIC
     Dosage: DOSE: 55.4 NG/KG/MIN CONTINUOUSLYCONCENTRATION: 45,000 NG/MLVIAL STRENGTH: 1.5 MGPUMP RATE: 94 [...]
     Route: 042
     Dates: start: 20090521
  3. FLOLAN [Suspect]
     Active Substance: EPOPROSTENOL SODIUM
     Dosage: UNK
     Dates: start: 20090521
  4. FLOLAN [Suspect]
     Active Substance: EPOPROSTENOL SODIUM
     Dosage: 55.4NG/KG/MIN CONTINUOUSLY, 94ML/DAY PUMP RATE
  5. COUMADIN [Concomitant]
     Active Substance: WARFARIN SODIUM
  6. TRACLEER [Concomitant]
     Active Substance: BOSENTAN
  7. FLOLAN [Suspect]
     Active Substance: EPOPROSTENOL SODIUM
     Dosage: UNK
     Dates: start: 20090521
  8. FLOLAN [Suspect]
     Active Substance: EPOPROSTENOL SODIUM
     Indication: PULMONARY HYPERTENSION
     Dosage: UNK
     Dates: start: 20090521

REACTIONS (12)
  - Pain in jaw [Recovered/Resolved]
  - Traumatic lung injury [Recovered/Resolved]
  - Rash [Recovered/Resolved]
  - Medical device complication [Recovered/Resolved]
  - Infusion site infection [Recovered/Resolved]
  - Pharyngitis streptococcal [Recovered/Resolved]
  - Pneumothorax [Fatal]
  - Central venous catheterisation [Recovered/Resolved]
  - Death [Fatal]
  - Bone pain [Recovered/Resolved]
  - Nasopharyngitis [Unknown]
  - Cough [Recovered/Resolved]

NARRATIVE: CASE EVENT DATE: 20120814
